FAERS Safety Report 19076370 (Version 1)
Quarter: 2021Q1

REPORT INFORMATION
  Report Type: Spontaneous
  Country: FR (occurrence: FR)
  Receive Date: 20210330
  Receipt Date: 20210330
  Transmission Date: 20210420
  Serious: Yes (Hospitalization)
  Sender: FDA-Public Use
  Company Number: FR-BAXTER-2021BAX006071

PATIENT
  Age: 10 Year
  Sex: Male

DRUGS (2)
  1. CEFOTAXIME BASE [Suspect]
     Active Substance: CEFOTAXIME SODIUM
     Indication: INFECTION
     Route: 042
     Dates: start: 20210308
  2. METRONIDAZOLE BAXTER 0,5 POUR CENT, SOLUTION INJECTABLE EN POCHE [Suspect]
     Active Substance: METRONIDAZOLE
     Indication: INFECTION
     Route: 042
     Dates: start: 20210308

REACTIONS (1)
  - Pancytopenia [Not Recovered/Not Resolved]

NARRATIVE: CASE EVENT DATE: 20210312
